FAERS Safety Report 13867435 (Version 3)
Quarter: 2017Q3

REPORT INFORMATION
  Report Type: Report from Study
  Country: US (occurrence: US)
  Receive Date: 20170814
  Receipt Date: 20170918
  Transmission Date: 20171127
  Serious: Yes (Other)
  Sender: FDA-Public Use
  Company Number: US-GILEAD-2017-0288137

PATIENT
  Age: 37 Year
  Sex: Male

DRUGS (4)
  1. ADCIRCA [Concomitant]
     Active Substance: TADALAFIL
  2. AMBRISENTAN [Suspect]
     Active Substance: AMBRISENTAN
     Indication: PRODUCT USED FOR UNKNOWN INDICATION
     Dosage: 10 MG, QD
     Route: 065
  3. REMODULIN [Concomitant]
     Active Substance: TREPROSTINIL
  4. WARFARIN [Concomitant]
     Active Substance: WARFARIN

REACTIONS (4)
  - Cellulitis [Unknown]
  - Pain in jaw [Unknown]
  - Oral infection [Not Recovered/Not Resolved]
  - Face oedema [Unknown]
